FAERS Safety Report 14461470 (Version 4)
Quarter: 2018Q2

REPORT INFORMATION
  Report Type: Report from Study
  Country: DE (occurrence: DE)
  Receive Date: 20180130
  Receipt Date: 20180411
  Transmission Date: 20180711
  Serious: Yes (Hospitalization, Other)
  Sender: FDA-Public Use
  Company Number: PHHY2018DE008430

PATIENT
  Age: 63 Year
  Sex: Female
  Weight: 50 kg

DRUGS (2)
  1. 5-AZACYTIDINE [Concomitant]
     Active Substance: AZACITIDINE
     Indication: MYELODYSPLASTIC SYNDROME
     Dosage: 110 MG, (110MG/DAY 1-5 AND DAY 8-9A 110 MG)
     Route: 065
     Dates: start: 20170619
  2. EXJADE [Suspect]
     Active Substance: DEFERASIROX
     Indication: MYELODYSPLASTIC SYNDROME
     Dosage: 360 MG, UNK(7.2MG/KG BODY)
     Route: 065
     Dates: start: 20170822, end: 20171103

REACTIONS (5)
  - Lymphadenopathy mediastinal [Not Recovered/Not Resolved]
  - Lung disorder [Recovered/Resolved]
  - Pulmonary fibrosis [Unknown]
  - Pneumonitis [Unknown]
  - Pruritus [Recovered/Resolved]

NARRATIVE: CASE EVENT DATE: 20170905
